FAERS Safety Report 6947641-5 (Version None)
Quarter: 2010Q3

REPORT INFORMATION
  Report Type: 
  Country: None (occurrence: None)
  Receive Date: 20100828
  Receipt Date: 20090915
  Transmission Date: 20110219
  Serious: No
  Sender: FDA-Public Use
  Company Number: US-ABBOTT-09P-163-0597980-00

PATIENT
  Sex: Male
  Weight: 83.99 kg

DRUGS (7)
  1. NIASPAN [Suspect]
     Indication: HIGH DENSITY LIPOPROTEIN INCREASED
     Dates: start: 20090901
  2. NIASPAN [Suspect]
     Dates: start: 20090914
  3. LIPITOR [Concomitant]
     Indication: BLOOD CHOLESTEROL INCREASED
  4. LISINOPRIL [Concomitant]
     Indication: HYPERTENSION
  5. LEVOXYL [Concomitant]
     Indication: HYPOTHYROIDISM
  6. METOPROLOL [Concomitant]
     Indication: HYPERTENSION
  7. ASPIRIN [Concomitant]
     Indication: PROPHYLAXIS
     Dosage: 0.5 TABLET

REACTIONS (2)
  - ABDOMINAL PAIN UPPER [None]
  - FLUSHING [None]
